FAERS Safety Report 11151869 (Version 6)
Quarter: 2019Q1

REPORT INFORMATION
  Report Type: Spontaneous
  Country: US (occurrence: US)
  Receive Date: 20150601
  Receipt Date: 20190101
  Transmission Date: 20190417
  Serious: No
  Sender: FDA-Public Use
  Company Number: US-PFIZER INC-2015179910

PATIENT
  Age: 77 Year
  Sex: Female

DRUGS (1)
  1. REVATIO [Suspect]
     Active Substance: SILDENAFIL CITRATE
     Indication: PULMONARY ARTERIAL HYPERTENSION
     Dosage: 20 MG, 3X/DAY (TAKE 1 TABLET (20 MG TOTAL) BY MOUTH 3 TIMES EVERY DAY.)
     Route: 048
     Dates: start: 201310

REACTIONS (3)
  - Musculoskeletal disorder [Unknown]
  - Stress [Unknown]
  - Weight decreased [Unknown]

NARRATIVE: CASE EVENT DATE: 201310
